FAERS Safety Report 7074000-X (Version None)
Quarter: 2010Q4

REPORT INFORMATION
  Report Type: 
  Country: None (occurrence: None)
  Receive Date: 20101029
  Receipt Date: 20101020
  Transmission Date: 20110411
  Serious: Yes (Hospitalization)
  Sender: FDA-Public Use
  Company Number: AU-ASTRAZENECA-2010SE50163

PATIENT
  Age: 27499 Day
  Sex: Male

DRUGS (9)
  1. NAROPIN [Suspect]
     Route: 065
  2. FENTANYL CITRATE [Suspect]
     Route: 065
  3. HYALASE [Suspect]
     Route: 065
  4. MIDAZOLAM [Suspect]
     Route: 065
  5. ASPIRIN [Concomitant]
  6. CALTRATE [Concomitant]
  7. CARTIA XT [Concomitant]
  8. PERINDOPRIL ERBUMINE [Concomitant]
  9. MINIPRESS [Concomitant]

REACTIONS (3)
  - DRUG HYPERSENSITIVITY [None]
  - FACE OEDEMA [None]
  - POST PROCEDURAL OEDEMA [None]
